FAERS Safety Report 7785246-7 (Version None)
Quarter: 2011Q3

REPORT INFORMATION
  Report Type: 
  Country: None (occurrence: None)
  Receive Date: 20110929
  Receipt Date: 20110915
  Transmission Date: 20111222
  Serious: Yes (Other)
  Sender: FDA-Public Use
  Company Number: FR-AMGEN-FRASP2011008493

PATIENT
  Sex: Female
  Weight: 2.4 kg

DRUGS (9)
  1. ADVIL LIQUI-GELS [Suspect]
     Indication: ANKYLOSING SPONDYLITIS
     Dosage: 200 MG, 3X/DAY
     Route: 064
     Dates: start: 20101215, end: 20110128
  2. ENBREL [Suspect]
     Dosage: 25 MG, QWK
     Route: 064
     Dates: start: 20110214, end: 20110518
  3. ENBREL [Suspect]
     Indication: ANKYLOSING SPONDYLITIS
     Dosage: UNK
     Route: 064
     Dates: start: 20040901, end: 20100901
  4. ENBREL [Suspect]
     Dosage: UNK
     Route: 064
     Dates: start: 20040901, end: 20100901
  5. ACETAMINOPHEN [Concomitant]
     Indication: ANKYLOSING SPONDYLITIS
     Dosage: 1000 MG, 3-4X/DAY
     Route: 064
     Dates: start: 20101215
  6. IRON SULFATETHIAMIN COMPOUND TAB [Concomitant]
     Dosage: UNK
     Dates: start: 20110110
  7. ENBREL [Suspect]
     Dosage: 25 MG, QWK
     Route: 064
     Dates: start: 20110214, end: 20110518
  8. PREDNISONE [Concomitant]
     Indication: ANKYLOSING SPONDYLITIS
     Dosage: 20 MG, 1X/DAY
     Route: 064
     Dates: start: 20110129, end: 20110214
  9. TARDYFERON                         /00023503/ [Concomitant]
     Indication: PROPHYLAXIS
     Dosage: 80 MG, BID
     Route: 064
     Dates: start: 20110201, end: 20110630

REACTIONS (3)
  - MATERNAL EXPOSURE DURING PREGNANCY [None]
  - PREMATURE BABY [None]
  - MATERNAL DRUGS AFFECTING FOETUS [None]
